FAERS Safety Report 11492573 (Version 1)
Quarter: 2015Q3

REPORT INFORMATION
  Report Type: Spontaneous
  Country: US (occurrence: None)
  Receive Date: 20150910
  Receipt Date: 20150910
  Transmission Date: 20151125
  Serious: No
  Sender: FDA-Public Use
  Company Number: None

PATIENT
  Age: 14 Year
  Sex: Male
  Weight: 68.04 kg

DRUGS (1)
  1. CLINDAMYCIN - BENZOYL PEROXIDE [Suspect]
     Active Substance: BENZOYL PEROXIDE\CLINDAMYCIN PHOSPHATE
     Indication: ACNE
     Dosage: 1.2%. / 5%
     Route: 061
     Dates: start: 20150807, end: 20150822

REACTIONS (7)
  - Pruritus [None]
  - Burning sensation [None]
  - Peripheral swelling [None]
  - Skin discolouration [None]
  - Vein disorder [None]
  - Toxicity to various agents [None]
  - Erythema [None]

NARRATIVE: CASE EVENT DATE: 20150820
